FAERS Safety Report 21944538 (Version 1)
Quarter: 2023Q1

REPORT INFORMATION
  Report Type: Other
  Country: None (occurrence: GB)
  Receive Date: 20230202
  Receipt Date: 20230202
  Transmission Date: 20230418
  Serious: Yes (Hospitalization)
  Sender: FDA-Public Use
  Company Number: GB-Renata Limited-2137407

PATIENT
  Age: 40 Year
  Sex: Female

DRUGS (2)
  1. RISPERIDONE [Suspect]
     Active Substance: RISPERIDONE
     Indication: Delusional disorder, unspecified type
     Route: 065
     Dates: start: 201911
  2. LEVOTHYROXINE [Concomitant]
     Active Substance: LEVOTHYROXINE
     Route: 065

REACTIONS (4)
  - Thyroid disorder [Recovered/Resolved]
  - Intellectual disability [Recovered/Resolved]
  - Decreased appetite [Recovered/Resolved]
  - Anal incontinence [Recovered/Resolved]
